FAERS Safety Report 21834898 (Version 4)
Quarter: 2023Q4

REPORT INFORMATION
  Report Type: Spontaneous
  Country: CA (occurrence: CA)
  Receive Date: 20230109
  Receipt Date: 20231030
  Transmission Date: 20240109
  Serious: Yes (Other)
  Sender: FDA-Public Use
  Company Number: CA-PFIZER INC-202200375965

PATIENT
  Age: 70 Year
  Sex: Male

DRUGS (1)
  1. ABRILADA [Suspect]
     Active Substance: ADALIMUMAB-AFZB
     Indication: Crohn^s disease
     Dosage: 40 MG, EVERY 14 DAYS
     Route: 058
     Dates: start: 20220418

REACTIONS (2)
  - Dry eye [Not Recovered/Not Resolved]
  - Fatigue [Not Recovered/Not Resolved]
